FAERS Safety Report 5947336-0 (Version None)
Quarter: 2008Q4

REPORT INFORMATION
  Report Type: 
  Country: None (occurrence: None)
  Receive Date: 20081110
  Receipt Date: 20081029
  Transmission Date: 20090506
  Serious: Yes (Death, Hospitalization, Other)
  Sender: FDA-Public Use
  Company Number: DE-PFIZER INC-2008043349

PATIENT
  Sex: Female

DRUGS (11)
  1. LYRICA [Suspect]
     Indication: RESTLESSNESS
     Route: 048
     Dates: start: 20070701
  2. ALL OTHER THERAPEUTIC PRODUCTS [Suspect]
  3. LEVOTHYROXINE SODIUM [Concomitant]
  4. EUNERPAN [Concomitant]
  5. AMLODIPINE [Concomitant]
  6. FURORESE [Concomitant]
  7. NEXIUM [Concomitant]
  8. BELOC ZOK [Concomitant]
  9. PROTHIPENDYL HYDROCHLORIDE [Concomitant]
  10. EXELON [Concomitant]
  11. RISPERIDONE [Concomitant]

REACTIONS (4)
  - FALL [None]
  - OESOPHAGITIS [None]
  - RENAL FAILURE ACUTE [None]
  - SEDATION [None]
